FAERS Safety Report 8034268-X (Version None)
Quarter: 2012Q1

REPORT INFORMATION
  Report Type: 
  Country: None (occurrence: None)
  Receive Date: 20120110
  Receipt Date: 20120105
  Transmission Date: 20120608
  Serious: Yes (Hospitalization, Other)
  Sender: FDA-Public Use
  Company Number: PHHY2012JP001468

PATIENT
  Age: 84 Year
  Sex: Female
  Weight: 52 kg

DRUGS (7)
  1. LIPITOR [Concomitant]
     Route: 048
  2. PREDNISOLONE [Concomitant]
     Route: 048
  3. ZOMETA [Suspect]
     Indication: MULTIPLE MYELOMA
     Dosage: 04 MG, UNK
     Route: 041
     Dates: start: 20080901, end: 20100901
  4. FAMOTIDINE [Concomitant]
     Route: 048
  5. TENORMIN [Concomitant]
     Route: 048
  6. ALENDRONATE SODIUM [Suspect]
     Indication: MULTIPLE MYELOMA
     Dosage: 05 MG, UNK
     Route: 048
     Dates: start: 20081001, end: 20101001
  7. METHYCOBAL [Concomitant]
     Route: 048

REACTIONS (3)
  - OSTEONECROSIS OF JAW [None]
  - FISTULA [None]
  - PATHOLOGICAL FRACTURE [None]
